FAERS Safety Report 4303248-X (Version None)
Quarter: 2004Q1

REPORT INFORMATION
  Report Type: 
  Country: None (occurrence: None)
  Receive Date: 20040223
  Receipt Date: 20040217
  Transmission Date: 20041129
  Serious: Yes (Hospitalization)
  Sender: FDA-Public Use
  Company Number: 2004-02-1063

PATIENT
  Sex: Female

DRUGS (5)
  1. CLARYTINE (LORATADINE) [Suspect]
     Dosage: 10 MG QD ORAL
     Route: 048
     Dates: start: 20031119
  2. SEROPRAM (CITALOPRAM HBR) TABLETS [Suspect]
     Dosage: 20 MG QD ORAL
     Route: 048
  3. LEXOMIL (BROMAZEPAM) TABLETS [Suspect]
     Dosage: SEE IMAGE
     Route: 048
     Dates: start: 20031119
  4. CROMOLYN SODIUM [Concomitant]
  5. DIGITOXINE [Concomitant]

REACTIONS (6)
  - BRADYPHRENIA [None]
  - CONFUSIONAL STATE [None]
  - DRUG INTERACTION [None]
  - FALL [None]
  - MALAISE [None]
  - SOMNOLENCE [None]
